FAERS Safety Report 10563450 (Version 1)
Quarter: 2014Q4

REPORT INFORMATION
  Report Type: Spontaneous
  Country: US (occurrence: US)
  Receive Date: 20141104
  Receipt Date: 20141104
  Transmission Date: 20150529
  Serious: No
  Sender: FDA-Public Use
  Company Number: US-BAUSCH-BL-2014-005112

PATIENT
  Sex: Female
  Weight: 90.8 kg

DRUGS (7)
  1. BONTRIL [Suspect]
     Active Substance: PHENDIMETRAZINE TARTRATE
     Indication: DECREASED APPETITE
  2. FLUXOAMINE [Concomitant]
     Indication: PRODUCT USED FOR UNKNOWN INDICATION
     Dates: start: 201405
  3. BONTRIL [Suspect]
     Active Substance: PHENDIMETRAZINE TARTRATE
     Indication: FATIGUE
     Route: 048
     Dates: start: 201408, end: 2014
  4. BONTRIL [Suspect]
     Active Substance: PHENDIMETRAZINE TARTRATE
     Indication: ASTHENIA
     Route: 048
     Dates: start: 2014
  5. INDERAL [Concomitant]
     Active Substance: PROPRANOLOL HYDROCHLORIDE
     Indication: MITRAL VALVE PROLAPSE
     Dates: start: 201405
  6. PROTONIX [Concomitant]
     Active Substance: PANTOPRAZOLE SODIUM
     Indication: PRODUCT USED FOR UNKNOWN INDICATION
     Dates: start: 201405
  7. KLONOPIN [Concomitant]
     Active Substance: CLONAZEPAM
     Indication: SLEEP DISORDER
     Dates: start: 201405

REACTIONS (3)
  - Somnolence [Unknown]
  - Drug effect decreased [Unknown]
  - Hypersomnia [None]

NARRATIVE: CASE EVENT DATE: 2014
